FAERS Safety Report 6370165-3 (Version None)
Quarter: 2009Q3

REPORT INFORMATION
  Report Type: 
  Country: None (occurrence: None)
  Receive Date: 20090923
  Receipt Date: 20090914
  Transmission Date: 20100115
  Serious: Yes (Other)
  Sender: FDA-Public Use
  Company Number: EC-ASTRAZENECA-2009SE14159

PATIENT
  Age: 32 Year
  Sex: Female

DRUGS (2)
  1. CRESTOR [Suspect]
     Indication: DYSLIPIDAEMIA
     Route: 048
     Dates: start: 20090422, end: 20090717
  2. MIGRAX [Concomitant]
     Indication: MIGRAINE
     Route: 048
     Dates: start: 20090401, end: 20090401

REACTIONS (1)
  - AMENORRHOEA [None]
